FAERS Safety Report 9567514 (Version 1)
Quarter: 2013Q3

REPORT INFORMATION
  Report Type: Spontaneous
  Country: US (occurrence: US)
  Receive Date: 20130930
  Receipt Date: 20130930
  Transmission Date: 20140515
  Serious: No
  Sender: FDA-Public Use
  Company Number: US-AMGEN-USASP2012077475

PATIENT
  Age: 46 Year
  Sex: Female

DRUGS (2)
  1. ENBREL [Suspect]
     Indication: PSORIATIC ARTHROPATHY
     Dosage: 50 MG,WEEKLY
     Route: 058
     Dates: start: 1997
  2. ENBREL [Suspect]
     Indication: PSORIASIS

REACTIONS (3)
  - Arthritis [Not Recovered/Not Resolved]
  - Cough [Unknown]
  - Bronchitis [Recovered/Resolved]
